FAERS Safety Report 25037417 (Version 12)
Quarter: 2025Q2

REPORT INFORMATION
  Report Type: Report from Study
  Country: US (occurrence: US)
  Receive Date: 20250304
  Receipt Date: 20250630
  Transmission Date: 20250717
  Serious: Yes (Hospitalization)
  Sender: TAKEDA
  Company Number: US-TAKEDA-2025TUS020562

PATIENT
  Age: 31 Year
  Sex: Female

DRUGS (9)
  1. ECALLANTIDE [Suspect]
     Active Substance: ECALLANTIDE
     Indication: Immune system disorder
  2. DIPHENHYDRAMINE [Concomitant]
     Active Substance: DIPHENHYDRAMINE
  3. FAMOTIDINE [Concomitant]
     Active Substance: FAMOTIDINE
  4. SOLU-MEDROL [Concomitant]
     Active Substance: METHYLPREDNISOLONE SODIUM SUCCINATE
  5. HAEGARDA [Concomitant]
     Active Substance: HUMAN C1-ESTERASE INHIBITOR
  6. XOLAIR [Concomitant]
     Active Substance: OMALIZUMAB
     Indication: Idiopathic urticaria
  7. XOLAIR [Concomitant]
     Active Substance: OMALIZUMAB
     Indication: Asthma
  8. STERILE WATER [Concomitant]
     Active Substance: WATER
  9. LACTATED RINGERS SOLUTION [Concomitant]
     Active Substance: CALCIUM CHLORIDE\POTASSIUM CHLORIDE\SODIUM CHLORIDE\SODIUM LACTATE

REACTIONS (7)
  - Procedural pain [Unknown]
  - Hereditary angioedema [Recovered/Resolved]
  - Weight decreased [Unknown]
  - Product use issue [Unknown]
  - Weight increased [Unknown]
  - Nausea [Unknown]
  - Vomiting [Unknown]

NARRATIVE: CASE EVENT DATE: 20250223
